FAERS Safety Report 16466380 (Version 1)
Quarter: 2019Q2

REPORT INFORMATION
  Report Type: Report from Study
  Country: None (occurrence: US)
  Receive Date: 20190622
  Receipt Date: 20190622
  Transmission Date: 20190711
  Serious: Yes (Other)
  Sender: FDA-Public Use
  Company Number: US-ABBVIE-19K-163-2824399-00

PATIENT
  Sex: Male

DRUGS (8)
  1. ATIVAN [Concomitant]
     Active Substance: LORAZEPAM
     Indication: ANXIETY
  2. IBUPROFEN. [Concomitant]
     Active Substance: IBUPROFEN
     Indication: PAIN
     Dosage: AS NEEDED
     Route: 048
  3. ATIVAN [Concomitant]
     Active Substance: LORAZEPAM
     Indication: NAUSEA
     Dosage: TAKE 1 -2 TAB PO EVERY 6 HRS AS NEEDED
     Route: 048
  4. LIDOCAINE PRILOCAINE BIOGARAN [Concomitant]
     Indication: CHEMOTHERAPY
     Dosage: APPLY TO PORT SITE 30-60 MIN PRIOR TO PORT ACCESS
  5. LOPERAMIDE [Concomitant]
     Active Substance: LOPERAMIDE
     Indication: DIARRHOEA
     Dosage: TAKE 2 CAPS PO WITH FIRST SIGN OF DIARRHEA THEN CAP 1 EVERY  2 HRS
     Route: 048
  6. ONDANSETRON [Concomitant]
     Active Substance: ONDANSETRON
     Indication: NAUSEA
     Dosage: AS NEEDED
     Route: 048
  7. CREON [Suspect]
     Active Substance: PANCRELIPASE AMYLASE\PANCRELIPASE LIPASE\PANCRELIPASE PROTEASE
     Indication: PRODUCT USED FOR UNKNOWN INDICATION
     Dosage: TAKES 3 CAPS WITH EVERY MEAL AND 2 CAPS WITH EVERY SNACK
     Route: 048
  8. ONDANSETRON [Concomitant]
     Active Substance: ONDANSETRON
     Indication: VOMITING

REACTIONS (11)
  - Flatulence [Unknown]
  - Abdominal distension [Unknown]
  - Coronary artery bypass [Unknown]
  - Limb operation [Unknown]
  - Steatorrhoea [Unknown]
  - Diarrhoea [Unknown]
  - Appendicectomy [Unknown]
  - Functional gastrointestinal disorder [Unknown]
  - Spinal operation [Unknown]
  - Tonsillectomy [Unknown]
  - Pancreatic carcinoma [Unknown]
